FAERS Safety Report 8183393-1 (Version None)
Quarter: 2012Q1

REPORT INFORMATION
  Report Type: 
  Country: None (occurrence: None)
  Receive Date: 20120305
  Receipt Date: 20120227
  Transmission Date: 20120608
  Serious: Yes (Other)
  Sender: FDA-Public Use
  Company Number: CA-NAPPMUNDI-DEU-2012-0008706

PATIENT
  Sex: Male

DRUGS (8)
  1. CIPROFLOXACIN [Interacting]
     Indication: PNEUMONIA ASPIRATION
     Dosage: 400 MG, Q12H
     Route: 042
  2. ACETAMINOPHEN W/ CODEINE [Suspect]
     Dosage: 650 MG, Q4H PRN
     Route: 048
  3. MORPHINE SULFATE [Suspect]
     Indication: PROCEDURAL PAIN
     Dosage: UNK, SEE TEXT
     Route: 048
  4. ACETAMINOPHEN W/ CODEINE [Suspect]
     Indication: PRODUCT USED FOR UNKNOWN INDICATION
     Dosage: 325 MG, Q4H PRN
     Route: 048
  5. MORPHINE SULFATE [Suspect]
     Dosage: 2 MG, SEE TEXT
     Route: 042
  6. METHADON HCL TAB [Interacting]
     Indication: DRUG DEPENDENCE
     Dosage: 50 MG, DAILY
     Route: 048
  7. LEVOMEPROMAZINE [Interacting]
     Indication: PRODUCT USED FOR UNKNOWN INDICATION
     Dosage: UNK, NOCTE PRN
     Route: 048
  8. MORPHINE SULFATE [Suspect]
     Indication: PROCEDURAL PAIN
     Dosage: UNK
     Route: 058

REACTIONS (4)
  - PNEUMONIA ASPIRATION [None]
  - RESPIRATORY DEPRESSION [None]
  - SOMNOLENCE [None]
  - MIOSIS [None]
